FAERS Safety Report 9704675 (Version 1)
Quarter: 2013Q4

REPORT INFORMATION
  Report Type: Spontaneous
  Country: US (occurrence: US)
  Receive Date: 20131122
  Receipt Date: 20131122
  Transmission Date: 20140711
  Serious: Yes (Other)
  Sender: FDA-Public Use
  Company Number: US-JNJFOC-20131108693

PATIENT
  Age: 65 Year
  Sex: Female

DRUGS (5)
  1. INVOKANA [Suspect]
     Indication: DIABETES MELLITUS
     Route: 048
  2. METFORMIN [Concomitant]
     Indication: DIABETES MELLITUS
     Route: 048
  3. NORVASC [Concomitant]
  4. LOSARTAN [Concomitant]
  5. LOVASTATIN [Concomitant]

REACTIONS (1)
  - Oedema [Unknown]
